FAERS Safety Report 25407748 (Version 1)
Quarter: 2025Q2

REPORT INFORMATION
  Report Type: Spontaneous
  Country: FR (occurrence: None)
  Receive Date: 20250606
  Receipt Date: 20250606
  Transmission Date: 20250717
  Serious: Yes (Other)
  Sender: FDA-CTU
  Company Number: None

PATIENT
  Age: 50 Year
  Sex: Male
  Weight: 100 kg

DRUGS (3)
  1. SERTRALINE [Suspect]
     Active Substance: SERTRALINE HYDROCHLORIDE
     Indication: Anxiety
  2. Sertraline 45mg [Concomitant]
  3. Magn?sium and om?ga 3 [Concomitant]

REACTIONS (9)
  - Insomnia [None]
  - Akathisia [None]
  - Anxiety [None]
  - Depersonalisation/derealisation disorder [None]
  - Anger [None]
  - Anger [None]
  - Suicidal ideation [None]
  - Photosensitivity reaction [None]
  - Hyperacusis [None]

NARRATIVE: CASE EVENT DATE: 20180315
